FAERS Safety Report 12756932 (Version 3)
Quarter: 2016Q4

REPORT INFORMATION
  Report Type: Spontaneous
  Country: TW (occurrence: TW)
  Receive Date: 20160917
  Receipt Date: 20161121
  Transmission Date: 20170207
  Serious: Yes (Other)
  Sender: FDA-Public Use
  Company Number: PHHY2016TW125485

PATIENT
  Age: 65 Year
  Sex: Male
  Weight: 49 kg

DRUGS (1)
  1. SEBIVO [Suspect]
     Active Substance: TELBIVUDINE
     Indication: HEPATITIS B
     Dosage: 1 DF, QD
     Route: 065
     Dates: start: 201108, end: 201609

REACTIONS (4)
  - Weight decreased [Not Recovered/Not Resolved]
  - Blood creatine phosphokinase increased [Not Recovered/Not Resolved]
  - Myalgia [Not Recovered/Not Resolved]
  - Amyotrophy [Not Recovered/Not Resolved]

NARRATIVE: CASE EVENT DATE: 201207
